FAERS Safety Report 17676311 (Version 1)
Quarter: 2020Q2

REPORT INFORMATION
  Report Type: Spontaneous
  Country: CA (occurrence: CA)
  Receive Date: 20200416
  Receipt Date: 20200416
  Transmission Date: 20200714
  Serious: Yes (Hospitalization, Other)
  Sender: FDA-Public Use
  Company Number: CA-SAMSUNG BIOEPIS-SB-2020-12813

PATIENT
  Age: 82 Year
  Sex: Female

DRUGS (1)
  1. INFLIXIMAB [Suspect]
     Active Substance: INFLIXIMAB
     Indication: PYODERMA GANGRENOSUM
     Route: 042

REACTIONS (10)
  - Product use in unapproved indication [Unknown]
  - Blood pressure fluctuation [Unknown]
  - Limb injury [Unknown]
  - Bacterial disease carrier [Unknown]
  - Hip fracture [Unknown]
  - Skin ulcer [Unknown]
  - Fall [Unknown]
  - Off label use [Unknown]
  - Contraindicated product prescribed [Unknown]
  - Intentional product use issue [Unknown]
